FAERS Safety Report 6486551-7 (Version None)
Quarter: 2009Q4

REPORT INFORMATION
  Report Type: 
  Country: None (occurrence: None)
  Receive Date: 20091209
  Receipt Date: 20091209
  Transmission Date: 20100525
  Serious: Yes (Hospitalization)
  Sender: FDA-Public Use
  Company Number: None

PATIENT
  Age: 72 Year
  Sex: Female
  Weight: 80 kg

DRUGS (10)
  1. DEMEROL [Suspect]
     Indication: ROTATOR CUFF REPAIR
     Dosage: RECENT
  2. ATACAND [Concomitant]
  3. TRIAMTERENE AND HYDROCHLOROTHIAZIDE [Concomitant]
  4. ATENOLOL [Concomitant]
  5. M.V.I. [Concomitant]
  6. CALTRATE [Concomitant]
  7. CYCANOCOBALAMIN [Concomitant]
  8. ZETIA [Concomitant]
  9. PERCOCET [Concomitant]
  10. ASPIRIN [Concomitant]

REACTIONS (7)
  - DEHYDRATION [None]
  - DYSKINESIA [None]
  - GAIT DISTURBANCE [None]
  - HYPOPHAGIA [None]
  - MUSCLE TWITCHING [None]
  - RENAL FAILURE ACUTE [None]
  - URINARY TRACT INFECTION [None]
